FAERS Safety Report 14889885 (Version 1)
Quarter: 2018Q2

REPORT INFORMATION
  Report Type: Spontaneous
  Country: NZ (occurrence: NZ)
  Receive Date: 20180514
  Receipt Date: 20180514
  Transmission Date: 20180711
  Serious: Yes (Other)
  Sender: FDA-Public Use
  Company Number: NZ-AMGEN-NZLSP2018009877

PATIENT
  Sex: Female

DRUGS (1)
  1. NEULASTA [Suspect]
     Active Substance: PEGFILGRASTIM
     Indication: EXPOSURE DURING PREGNANCY
     Dosage: 6 MG, UNK
     Route: 050

REACTIONS (2)
  - Abortion spontaneous [Recovered/Resolved]
  - Paternal exposure during pregnancy [Unknown]

NARRATIVE: CASE EVENT DATE: 2017
